FAERS Safety Report 4557226-6 (Version None)
Quarter: 2005Q1

REPORT INFORMATION
  Report Type: 
  Country: None (occurrence: None)
  Receive Date: 20050120
  Receipt Date: 20050114
  Transmission Date: 20050727
  Serious: Yes (Other)
  Sender: FDA-Public Use
  Company Number: US-GLAXOSMITHKLINE-A0540789A

PATIENT
  Age: 5 Year
  Sex: Female

DRUGS (5)
  1. ADVAIR DISKUS 100/50 [Suspect]
     Indication: ASTHMA
     Dosage: 1PUFF TWICE PER DAY
     Route: 055
     Dates: start: 20041222, end: 20050101
  2. SINGULAIR [Concomitant]
  3. NASONEX [Concomitant]
  4. CLARITIN [Concomitant]
  5. ADVAIR DISKUS 100/50 [Concomitant]

REACTIONS (3)
  - AGGRESSION [None]
  - RESTLESSNESS [None]
  - SLEEP DISORDER [None]
